FAERS Safety Report 12232612 (Version 3)
Quarter: 2016Q2

REPORT INFORMATION
  Report Type: Spontaneous
  Country: US (occurrence: US)
  Receive Date: 20160401
  Receipt Date: 20160609
  Transmission Date: 20160815
  Serious: No
  Sender: FDA-Public Use
  Company Number: US-009507513-1603USA003799

PATIENT
  Age: 27 Year
  Sex: Female
  Weight: 75.74 kg

DRUGS (1)
  1. NEXPLANON [Suspect]
     Active Substance: ETONOGESTREL
     Indication: CONTRACEPTION
     Dosage: 68 MG, 1 DF, 3 YEARS
     Route: 059
     Dates: start: 20151231

REACTIONS (5)
  - Blood pressure increased [Unknown]
  - Complication associated with device [Recovered/Resolved]
  - Malaise [Unknown]
  - Vaginal haemorrhage [Unknown]
  - Adverse event [Unknown]

NARRATIVE: CASE EVENT DATE: 2016
